FAERS Safety Report 6333283-1 (Version None)
Quarter: 2009Q3

REPORT INFORMATION
  Report Type: 
  Country: None (occurrence: None)
  Receive Date: 20090828
  Receipt Date: 20090828
  Transmission Date: 20100115
  Serious: Yes (Other)
  Sender: FDA-Public Use
  Company Number: US-PFIZER INC-2007091736

PATIENT
  Sex: Male
  Weight: 83 kg

DRUGS (2)
  1. DILANTIN [Suspect]
     Indication: EPILEPSY
     Dates: start: 19690101
  2. PHENOBARBITAL [Concomitant]

REACTIONS (4)
  - ANXIETY [None]
  - FAECES DISCOLOURED [None]
  - FEELING ABNORMAL [None]
  - VISUAL ACUITY REDUCED [None]
